FAERS Safety Report 8090378-2 (Version None)
Quarter: 2012Q1

REPORT INFORMATION
  Report Type: 
  Country: None (occurrence: None)
  Receive Date: 20120129
  Receipt Date: 20111130
  Transmission Date: 20120608
  Serious: No
  Sender: FDA-Public Use
  Company Number: US-ABBOTT-11P-163-0879720-00

PATIENT
  Age: 63 Year
  Sex: Female

DRUGS (13)
  1. CYMBALTA [Concomitant]
     Indication: DEPRESSION
     Route: 048
  2. VITAMIN B-12 [Concomitant]
     Indication: VITAMIN SUPPLEMENTATION
     Route: 030
  3. VISTRAL [Concomitant]
     Indication: INSOMNIA
     Dosage: AT BEDTIME
     Route: 048
  4. ROBAXIN [Concomitant]
     Indication: MUSCLE SPASMS
     Dosage: 1-2 TABLETS TWICE DAILY
     Route: 048
  5. ZOMIG [Concomitant]
     Indication: MIGRAINE
     Dosage: DAILY
     Route: 048
  6. GABAPENTIN [Concomitant]
     Indication: NEURALGIA
     Route: 048
  7. TRAMADOL HCL [Concomitant]
     Indication: PAIN
     Dosage: 1-2 TABLETS THREE TIMES DAILY
     Route: 048
  8. VOLTAREN [Concomitant]
     Indication: PRODUCT USED FOR UNKNOWN INDICATION
     Dosage: APPLY TO AREA IN PAIN
  9. HUMIRA [Suspect]
     Indication: RHEUMATOID ARTHRITIS
     Dates: start: 20110209
  10. TRAZODONE HCL [Concomitant]
     Indication: INSOMNIA
     Dosage: AT BEDTIME
     Route: 048
  11. METHOTREXATE [Concomitant]
     Indication: ARTHRITIS
     Route: 048
     Dates: start: 20110201
  12. REQUIP [Concomitant]
     Indication: RESTLESS LEGS SYNDROME
     Route: 048
  13. LIDODERM [Concomitant]
     Indication: PRODUCT USED FOR UNKNOWN INDICATION
     Dosage: APPLIED TO PAINFUL AREAS AS NEEDED

REACTIONS (1)
  - INJECTION SITE PAIN [None]
